FAERS Safety Report 18979213 (Version 1)
Quarter: 2021Q1

REPORT INFORMATION
  Report Type: Spontaneous
  Country: US (occurrence: US)
  Receive Date: 20210308
  Receipt Date: 20210308
  Transmission Date: 20210420
  Serious: No
  Sender: FDA-Public Use
  Company Number: US-AMGEN-USASP2021034742

PATIENT
  Age: 61 Year
  Sex: Female

DRUGS (17)
  1. ASPIRIN [ACETYLSALICYLIC ACID] [Concomitant]
     Active Substance: ASPIRIN
  2. OMEPRAZOLE. [Concomitant]
     Active Substance: OMEPRAZOLE
  3. LOVAZA [Concomitant]
     Active Substance: OMEGA-3-ACID ETHYL ESTERS
  4. LIDOCAINE/PRILOCAINE [Concomitant]
     Active Substance: LIDOCAINE\PRILOCAINE
  5. COENZYME Q10 [Concomitant]
     Active Substance: DIETARY SUPPLEMENT\UBIDECARENONE
  6. NAPROSYN [Concomitant]
     Active Substance: NAPROXEN
  7. ACETAMINOPHEN. [Concomitant]
     Active Substance: ACETAMINOPHEN
  8. OTEZLA [Suspect]
     Active Substance: APREMILAST
     Indication: PSORIASIS
     Dosage: 30 MILLIGRAM, BID
     Route: 048
     Dates: start: 20201020
  9. RESTASIS [Concomitant]
     Active Substance: CYCLOSPORINE
     Dosage: UNK
  10. PREVACID [Concomitant]
     Active Substance: LANSOPRAZOLE
  11. VITAMIN D [ERGOCALCIFEROL] [Concomitant]
     Active Substance: ERGOCALCIFEROL
  12. ATORVASTATIN [Concomitant]
     Active Substance: ATORVASTATIN
  13. ORENCIA [Concomitant]
     Active Substance: ABATACEPT
  14. GABAPENTIN. [Concomitant]
     Active Substance: GABAPENTIN
  15. XELJANZ XR [Concomitant]
     Active Substance: TOFACITINIB CITRATE
  16. ARAVA [Concomitant]
     Active Substance: LEFLUNOMIDE
  17. HYDROCHLOROTHIAZIDE. [Concomitant]
     Active Substance: HYDROCHLOROTHIAZIDE

REACTIONS (1)
  - Nausea [Not Recovered/Not Resolved]
